FAERS Safety Report 20170455 (Version 5)
Quarter: 2022Q1

REPORT INFORMATION
  Report Type: Report from Study
  Country: US (occurrence: US)
  Receive Date: 20211210
  Receipt Date: 20220302
  Transmission Date: 20220423
  Serious: Yes (Hospitalization, Other)
  Sender: FDA-Public Use
  Company Number: US-GLAXOSMITHKLINE-US2021GSK248769

PATIENT
  Age: 62 Year
  Sex: Female
  Weight: 61.678 kg

DRUGS (16)
  1. NIRAPARIB [Suspect]
     Active Substance: NIRAPARIB
     Indication: Ovarian cancer
     Dosage: 100 MG
     Dates: end: 20211130
  2. DOSTARLIMAB [Suspect]
     Active Substance: DOSTARLIMAB
     Indication: Ovarian cancer
     Dosage: 500 MG
     Dates: start: 20201215, end: 20201215
  3. DOSTARLIMAB [Suspect]
     Active Substance: DOSTARLIMAB
     Dosage: 1000 MG
     Dates: start: 20211026, end: 20211026
  4. CARBOPLATIN [Suspect]
     Active Substance: CARBOPLATIN
     Indication: Ovarian cancer
     Dosage: 6 AUC
     Route: 042
     Dates: start: 20201124, end: 20201124
  5. CARBOPLATIN [Suspect]
     Active Substance: CARBOPLATIN
     Dosage: 5 AUC
     Route: 042
     Dates: start: 20210309, end: 20210309
  6. PACLITAXEL [Suspect]
     Active Substance: PACLITAXEL
     Indication: Ovarian cancer
     Dosage: 294 MG
     Route: 042
     Dates: start: 20201124, end: 20201124
  7. PACLITAXEL [Suspect]
     Active Substance: PACLITAXEL
     Dosage: 215 MG
     Route: 042
     Dates: start: 20210309, end: 20210309
  8. BEVACIZUMAB [Suspect]
     Active Substance: BEVACIZUMAB
     Indication: Ovarian cancer
     Dosage: UNK
     Route: 042
  9. BEVACIZUMAB [Suspect]
     Active Substance: BEVACIZUMAB
     Dosage: 855 MG/KG
     Route: 042
     Dates: start: 20211116, end: 20211116
  10. CISPLATIN [Concomitant]
     Active Substance: CISPLATIN
     Dosage: UNK
  11. DOCETAXEL [Concomitant]
     Active Substance: DOCETAXEL
     Dosage: UNK
  12. FUROSEMIDE [Concomitant]
     Active Substance: FUROSEMIDE
  13. POTASSIUM CHLORIDE [Concomitant]
     Active Substance: POTASSIUM CHLORIDE
  14. ALBUMIN HUMAN [Concomitant]
     Active Substance: ALBUMIN HUMAN
  15. ACETAMINOPHEN [Concomitant]
     Active Substance: ACETAMINOPHEN
  16. ONDANSETRON [Concomitant]
     Active Substance: ONDANSETRON

REACTIONS (3)
  - Hyponatraemia [Not Recovered/Not Resolved]
  - Large intestinal obstruction [Recovered/Resolved]
  - Abdominal pain [Not Recovered/Not Resolved]

NARRATIVE: CASE EVENT DATE: 20211201
